FAERS Safety Report 4586607-X (Version None)
Quarter: 2005Q1

REPORT INFORMATION
  Report Type: 
  Country: None (occurrence: None)
  Receive Date: 20050218
  Receipt Date: 20040625
  Transmission Date: 20050727
  Serious: Yes (Other)
  Sender: FDA-Public Use
  Company Number: US-BRISTOL-MYERS SQUIBB COMPANY-12625471

PATIENT
  Age: 46 Year
  Sex: Female
  Weight: 77 kg

DRUGS (8)
  1. TAXOL [Suspect]
     Indication: OVARIAN CANCER
     Dosage: THERAPY DATES: 12-JUL-1999 TO 09-NOV-1999
     Route: 042
     Dates: start: 19991109, end: 19991109
  2. CARBOPLATIN [Suspect]
     Indication: OVARIAN CANCER
     Dosage: 12-JUL-1999 TO 09-NOV-1999; AUC 7.5
     Route: 042
     Dates: start: 19991109, end: 19991109
  3. CIMETIDINE [Concomitant]
     Indication: PREMEDICATION
     Route: 042
     Dates: start: 19991101, end: 19991101
  4. BENADRYL [Concomitant]
     Indication: PREMEDICATION
     Route: 042
     Dates: start: 19991101, end: 19991101
  5. DECADRON [Concomitant]
     Indication: PREMEDICATION
     Route: 042
     Dates: start: 19991101, end: 19991101
  6. ZOFRAN [Concomitant]
     Indication: PREMEDICATION
     Route: 042
     Dates: start: 19991101, end: 19991101
  7. PREMARIN [Concomitant]
  8. MEPROBAMATE [Concomitant]

REACTIONS (1)
  - PULMONARY FIBROSIS [None]
